FAERS Safety Report 24782922 (Version 2)
Quarter: 2025Q3

REPORT INFORMATION
  Report Type: Spontaneous
  Country: GB (occurrence: GB)
  Receive Date: 20241227
  Receipt Date: 20250905
  Transmission Date: 20251020
  Serious: Yes (Other)
  Sender: RANBAXY
  Company Number: GB-MHRA-TPP43621165C14726894YC1733906288685

PATIENT
  Age: 77 Year
  Sex: Male
  Weight: 96 kg

DRUGS (11)
  1. TAMSULOSIN [Suspect]
     Active Substance: TAMSULOSIN
     Indication: Ill-defined disorder
     Route: 065
  2. LUPRON DEPOT [Concomitant]
     Active Substance: LEUPROLIDE ACETATE
     Indication: Ill-defined disorder
     Route: 065
     Dates: start: 20240912, end: 20241205
  3. DECAPEPTYL [Concomitant]
     Indication: Ill-defined disorder
     Route: 065
     Dates: start: 20241206
  4. CINNARIZINE [Concomitant]
     Active Substance: CINNARIZINE
     Indication: Ill-defined disorder
     Route: 065
     Dates: start: 20241104, end: 20241202
  5. INDAPAMIDE [Concomitant]
     Active Substance: INDAPAMIDE
     Indication: Ill-defined disorder
     Route: 065
     Dates: start: 20240329
  6. ACETAMINOPHEN [Concomitant]
     Active Substance: ACETAMINOPHEN
     Indication: Ill-defined disorder
     Route: 065
     Dates: start: 20240329
  7. AGAMATRIX ULTRA-THIN [Concomitant]
     Indication: Ill-defined disorder
     Route: 065
     Dates: start: 20240329, end: 20241029
  8. ASPIRIN [Concomitant]
     Active Substance: ASPIRIN
     Indication: Ill-defined disorder
     Route: 065
     Dates: start: 20240329
  9. OMEPRAZOLE [Concomitant]
     Active Substance: OMEPRAZOLE
     Indication: Ill-defined disorder
     Route: 065
     Dates: start: 20240329
  10. WAVESENSE JAZZ [Concomitant]
     Indication: Ill-defined disorder
     Route: 065
     Dates: start: 20240329, end: 20241029
  11. TAMSULOSIN HYDROCHLORIDE [Concomitant]
     Active Substance: TAMSULOSIN HYDROCHLORIDE
     Indication: Ill-defined disorder
     Route: 065
     Dates: start: 20241108

REACTIONS (1)
  - Rash [Recovering/Resolving]
